FAERS Safety Report 20403190 (Version 1)
Quarter: 2022Q1

REPORT INFORMATION
  Report Type: Spontaneous
  Country: US (occurrence: US)
  Receive Date: 20220131
  Receipt Date: 20220131
  Transmission Date: 20220423
  Serious: No
  Sender: FDA-Public Use
  Company Number: US-BIOVITRUM-2022US01070

PATIENT
  Sex: Female
  Weight: 4 kg

DRUGS (6)
  1. SYNAGIS [Suspect]
     Active Substance: PALIVIZUMAB
     Indication: Premature baby
     Route: 030
     Dates: start: 20211208
  2. LASIX [Concomitant]
     Active Substance: FUROSEMIDE
  3. SYNAGIS [Suspect]
     Active Substance: PALIVIZUMAB
     Indication: Trisomy 21
  4. SYNAGIS [Suspect]
     Active Substance: PALIVIZUMAB
     Indication: Autism spectrum disorder
  5. SYNAGIS [Suspect]
     Active Substance: PALIVIZUMAB
     Indication: Ventricular septal defect
  6. SYNAGIS [Suspect]
     Active Substance: PALIVIZUMAB
     Indication: Bilirubin excretion disorder

REACTIONS (1)
  - Respiratory syncytial virus infection [Not Recovered/Not Resolved]
